FAERS Safety Report 24834732 (Version 1)
Quarter: 2025Q1

REPORT INFORMATION
  Report Type: Spontaneous
  Country: FR (occurrence: FR)
  Receive Date: 20250113
  Receipt Date: 20250113
  Transmission Date: 20250409
  Serious: Yes (Hospitalization, Other)
  Sender: AUROBINDO
  Company Number: FR-AFSSAPS-NC2024001685

PATIENT
  Age: 59 Year
  Sex: Male

DRUGS (2)
  1. TAMSULOSIN [Suspect]
     Active Substance: TAMSULOSIN
     Indication: Benign prostatic hyperplasia
     Dosage: 0.4 MILLIGRAM, ONCE A DAY
     Route: 048
     Dates: start: 20240917, end: 20241205
  2. ALVERINE CITRATE\RACEMETHIONINE [Suspect]
     Active Substance: ALVERINE CITRATE\RACEMETHIONINE
     Indication: Abdominal distension
     Route: 048

REACTIONS (2)
  - Hepatitis acute [Recovering/Resolving]
  - Jaundice [Recovering/Resolving]

NARRATIVE: CASE EVENT DATE: 20241205
